FAERS Safety Report 20310954 (Version 2)
Quarter: 2022Q1

REPORT INFORMATION
  Report Type: Report from Study
  Country: GB (occurrence: GB)
  Receive Date: 20220107
  Receipt Date: 20220111
  Transmission Date: 20220423
  Serious: Yes (Death, Life-Threatening, Hospitalization)
  Sender: FDA-Public Use
  Company Number: GB-CELGENE-GBR-20220101279

PATIENT
  Age: 78 Year
  Sex: Male
  Weight: 81 kg

DRUGS (2)
  1. LENALIDOMIDE [Suspect]
     Active Substance: LENALIDOMIDE
     Indication: Plasma cell myeloma
     Dosage: 10 MILLIGRAM
     Route: 048
     Dates: start: 20210915, end: 20210925
  2. DEXAMETHASONE [Suspect]
     Active Substance: DEXAMETHASONE
     Indication: Plasma cell myeloma
     Route: 048
     Dates: start: 20210915, end: 20210925

REACTIONS (3)
  - Nausea [Fatal]
  - Vomiting [Fatal]
  - Pain [Fatal]

NARRATIVE: CASE EVENT DATE: 20211112
